FAERS Safety Report 16289899 (Version 1)
Quarter: 2019Q2

REPORT INFORMATION
  Report Type: Report from Study
  Country: RO (occurrence: RO)
  Receive Date: 20190509
  Receipt Date: 20190509
  Transmission Date: 20190711
  Serious: Yes (Hospitalization)
  Sender: FDA-Public Use
  Company Number: RO-ROCHE-2314227

PATIENT
  Age: 67 Year
  Sex: Male
  Weight: 60 kg

DRUGS (1)
  1. MABTHERA [Suspect]
     Active Substance: RITUXIMAB
     Indication: LEUKAEMIA
     Dosage: FIRST ADMINISTRATION WAS APPROXIMATELY ON 17 OR 18/APR/2019
     Route: 058
     Dates: start: 201904

REACTIONS (1)
  - Malaise [Recovered/Resolved]
